FAERS Safety Report 5443428-3 (Version None)
Quarter: 2007Q3

REPORT INFORMATION
  Report Type: 
  Country: None (occurrence: None)
  Receive Date: 20070905
  Receipt Date: 20070831
  Transmission Date: 20080115
  Serious: Yes (Disabling)
  Sender: FDA-Public Use
  Company Number: B0485292A

PATIENT
  Age: 57 Year
  Sex: Female

DRUGS (6)
  1. PAXIL [Suspect]
     Indication: DEPRESSION
     Dosage: 20MG PER DAY
     Route: 048
     Dates: start: 20070626
  2. OLMETEC [Concomitant]
     Dosage: 10MG PER DAY
     Route: 048
  3. DEPAS [Concomitant]
     Dosage: .5MG TWICE PER DAY
     Route: 048
  4. NORVASC [Concomitant]
     Dosage: 5MG PER DAY
     Route: 048
  5. LENDEM [Concomitant]
     Dosage: 1TAB PER DAY
     Route: 048
  6. SELBEX [Concomitant]
     Dosage: 50MG THREE TIMES PER DAY
     Route: 048

REACTIONS (2)
  - ABNORMAL BEHAVIOUR [None]
  - AFFECT LABILITY [None]
